FAERS Safety Report 17575357 (Version 1)
Quarter: 2020Q1

REPORT INFORMATION
  Report Type: Spontaneous
  Country: GB (occurrence: GB)
  Receive Date: 20200324
  Receipt Date: 20200324
  Transmission Date: 20200409
  Serious: No
  Sender: FDA-Public Use
  Company Number: GB-ALKEM LABORATORIES LIMITED-GB-ALKEM-2019-04756

PATIENT
  Age: 30 Year
  Sex: Female

DRUGS (2)
  1. SERTRALINE HYDROCHLORIDE. [Concomitant]
     Active Substance: SERTRALINE HYDROCHLORIDE
     Indication: PRODUCT USED FOR UNKNOWN INDICATION
     Dosage: UNKNOWN
     Route: 065
  2. QUETIAPINE FUMARATE. [Suspect]
     Active Substance: QUETIAPINE FUMARATE
     Indication: ANXIETY
     Dosage: 150 MILLIGRAM, QD
     Route: 048
     Dates: start: 20190411, end: 20190413

REACTIONS (1)
  - Dyskinesia [Recovered/Resolved]

NARRATIVE: CASE EVENT DATE: 20190412
